FAERS Safety Report 9293152 (Version 1)
Quarter: 2013Q2

REPORT INFORMATION
  Report Type: Spontaneous
  Country: IN (occurrence: None)
  Receive Date: 20130514
  Receipt Date: 20130514
  Transmission Date: 20140414
  Serious: Yes (Other)
  Sender: FDA-Public Use
  Company Number: 2013P1005409

PATIENT
  Age: 14 Year
  Sex: Female

DRUGS (3)
  1. PHENYTOIN [Suspect]
     Indication: PARTIAL SEIZURES
  2. VALPROATE SODIUM [Concomitant]
  3. CLOBAZAM [Concomitant]

REACTIONS (2)
  - Grand mal convulsion [None]
  - Status epilepticus [None]
